FAERS Safety Report 17873259 (Version 2)
Quarter: 2020Q3

REPORT INFORMATION
  Report Type: Report from Study
  Country: JP (occurrence: JP)
  Receive Date: 20200608
  Receipt Date: 20200811
  Transmission Date: 20201103
  Serious: Yes (Death, Life-Threatening, Hospitalization, Other)
  Sender: FDA-Public Use
  Company Number: JP-AMGEN-JPNCT2020090009

PATIENT
  Age: 86 Year
  Sex: Male

DRUGS (28)
  1. LYRICA [Concomitant]
     Active Substance: PREGABALIN
     Dosage: 150 MG
     Route: 048
     Dates: end: 20150907
  2. METHYCOBAL [Concomitant]
     Active Substance: METHYLCOBALAMIN
     Dosage: 1500 UG
     Route: 048
     Dates: start: 20150810, end: 20160205
  3. RISPERDAL [Concomitant]
     Active Substance: RISPERIDONE
     Dosage: 0.5 MG
     Route: 048
     Dates: start: 20151016, end: 20151108
  4. DESYREL [Concomitant]
     Active Substance: TRAZODONE HYDROCHLORIDE
     Dosage: 25 MG
     Route: 048
     Dates: start: 20151019, end: 20151108
  5. FLOMOX [CEFCAPENE PIVOXIL HYDROCHLORIDE] [Concomitant]
     Active Substance: CEFCAPENE PIVOXIL HYDROCHLORIDE
     Dosage: 300 MG
     Route: 048
     Dates: start: 20151130, end: 20151204
  6. DARBEPOETIN ALFA [Suspect]
     Active Substance: DARBEPOETIN ALFA
     Dosage: 240 UG, 1X/WEEK
     Route: 058
     Dates: start: 20150803, end: 20150810
  7. GRACEVIT [Concomitant]
     Active Substance: SITAFLOXACIN
     Indication: PNEUMONIA
     Dosage: 100 MG
     Route: 048
     Dates: start: 20160220, end: 20160307
  8. FLOMOX [CEFCAPENE PIVOXIL HYDROCHLORIDE] [Concomitant]
     Active Substance: CEFCAPENE PIVOXIL HYDROCHLORIDE
     Dosage: 300 MG
     Route: 048
     Dates: start: 20151102, end: 20151108
  9. DARBEPOETIN ALFA [Suspect]
     Active Substance: DARBEPOETIN ALFA
     Dosage: 240 UG
     Route: 058
     Dates: start: 20150730, end: 20150730
  10. DARBEPOETIN ALFA [Suspect]
     Active Substance: DARBEPOETIN ALFA
     Dosage: 240 UG, 1X/2 WEEKS
     Route: 058
     Dates: start: 20151130, end: 20151228
  11. BAYASPIRIN [Concomitant]
     Active Substance: ASPIRIN
     Dosage: 100 MG
     Route: 048
     Dates: end: 20160310
  12. CRAVIT [Concomitant]
     Active Substance: LEVOFLOXACIN
     Dosage: 500 MG
     Route: 048
     Dates: start: 20160407, end: 20160501
  13. FAROM [Concomitant]
     Active Substance: FAROPENEM SODIUM
     Indication: BRONCHITIS
     Dosage: 600 MG
     Route: 048
     Dates: start: 20150803, end: 20150807
  14. FAROM [Concomitant]
     Active Substance: FAROPENEM SODIUM
     Dosage: 1200 MG
     Route: 048
     Dates: start: 20160307, end: 20160313
  15. LOXONIN [Concomitant]
     Active Substance: LOXOPROFEN SODIUM
     Dosage: 100 MG
     Dates: end: 20160501
  16. VFEND [Concomitant]
     Active Substance: VORICONAZOLE
     Dosage: 400 MG
     Route: 048
     Dates: start: 20160407, end: 20160501
  17. DARBEPOETIN ALFA [Suspect]
     Active Substance: DARBEPOETIN ALFA
     Dosage: 240 UG
     Route: 058
     Dates: start: 20160107, end: 20160107
  18. SHAKUYAKUKANZOTO [Concomitant]
     Active Substance: HERBALS
     Dosage: 5 G
     Route: 048
     Dates: end: 20150907
  19. ADONA [Concomitant]
     Indication: HAEMORRHAGIC DIATHESIS
     Dosage: 90 MILLIGRAM
     Route: 048
     Dates: start: 20151228, end: 20160214
  20. ADONA [CARBAZOCHROME SODIUM SULFONATE] [Concomitant]
     Active Substance: CARBAZOCHROME SODIUM SULFONATE
     Dosage: 90 MG
     Route: 048
     Dates: start: 20151228, end: 20160214
  21. DARBEPOETIN ALFA [Suspect]
     Active Substance: DARBEPOETIN ALFA
     Indication: MYELODYSPLASTIC SYNDROME
     Dosage: 240 UG, 1X/2 WEEKS
     Route: 058
     Dates: start: 20160118, end: 20160201
  22. DARBEPOETIN ALFA [Suspect]
     Active Substance: DARBEPOETIN ALFA
     Dosage: 240 UG, 1X/2 WEEKS
     Route: 058
     Dates: start: 20150824, end: 20150907
  23. DARBEPOETIN ALFA [Suspect]
     Active Substance: DARBEPOETIN ALFA
     Dosage: 240 UG
     Route: 058
     Dates: start: 20150928, end: 20150928
  24. FAROM [Concomitant]
     Active Substance: FAROPENEM SODIUM
     Dosage: 600 MG
     Route: 048
     Dates: start: 20151230, end: 20160102
  25. YOKUKANSAN [Concomitant]
     Active Substance: HERBALS
     Dosage: 7.5 G
     Route: 048
     Dates: start: 20151010, end: 20151108
  26. CLEANAL [Concomitant]
     Active Substance: FUDOSTEINE
     Indication: BRONCHITIS
     Dosage: 1200 MG
     Route: 048
     Dates: start: 20150803, end: 20150807
  27. CRESTOR [Concomitant]
     Active Substance: ROSUVASTATIN CALCIUM
     Dosage: 2.5 MG
     Route: 048
     Dates: end: 20160501
  28. DIFLUCAN [Concomitant]
     Active Substance: FLUCONAZOLE
     Dosage: 100 MG
     Route: 048
     Dates: start: 20160307, end: 20160406

REACTIONS (10)
  - Sepsis [Recovered/Resolved]
  - Sepsis [Fatal]
  - Cellulitis [Recovering/Resolving]
  - Skin infection [Recovering/Resolving]
  - Cerebral infarction [Recovering/Resolving]
  - Pneumonia [Fatal]
  - Pneumonia [Recovered/Resolved]
  - Haemorrhagic diathesis [Not Recovered/Not Resolved]
  - Transformation to acute myeloid leukaemia [Fatal]
  - Cellulitis [Recovering/Resolving]

NARRATIVE: CASE EVENT DATE: 20151012
